FAERS Safety Report 8830295 (Version 2)
Quarter: 2013Q1

REPORT INFORMATION
  Report Type: Spontaneous
  Country: GB (occurrence: GB)
  Receive Date: 20121009
  Receipt Date: 20130114
  Transmission Date: 20140127
  Serious: Yes (Other)
  Sender: FDA-Public Use
  Company Number: GB-PFIZER INC-2012245848

PATIENT
  Age: 70 Year
  Sex: Male

DRUGS (8)
  1. DOXAZOSIN MESILATE [Suspect]
     Dosage: 4 MG, 1X/DAY
     Dates: start: 200903, end: 2009
  2. LANSOPRAZOLE [Interacting]
     Dosage: 15 MG, UNK
     Dates: start: 20120903
  3. CLOPIDOGREL SULFATE [Interacting]
     Dosage: 75 MG, 1X/DAY
     Dates: start: 201110
  4. ASPIRIN [Concomitant]
     Dosage: 75 MG, UNK
     Dates: start: 200901, end: 201110
  5. ASPIRIN [Concomitant]
     Dosage: 75 MG, UNK
     Dates: start: 20120503
  6. ATORVASTATIN [Concomitant]
     Dosage: 20 MG, 1X/DAY
     Dates: start: 2004
  7. ENALAPRIL [Concomitant]
     Dosage: 40 MG, 1X/DAY
     Dates: start: 2006
  8. AMLODIPINE [Concomitant]
     Dosage: 10 MG, 1X/DAY
     Dates: start: 200902

REACTIONS (6)
  - Drug interaction [Unknown]
  - Drug ineffective [Recovering/Resolving]
  - Contusion [Not Recovered/Not Resolved]
  - Epistaxis [Unknown]
  - Bleeding time prolonged [Unknown]
  - Nocturia [Unknown]
